FAERS Safety Report 24738603 (Version 3)
Quarter: 2024Q4

REPORT INFORMATION
  Report Type: Spontaneous
  Country: FR (occurrence: FR)
  Receive Date: 20241216
  Receipt Date: 20241225
  Transmission Date: 20250114
  Serious: Yes (Life-Threatening)
  Sender: MYLAN
  Company Number: None

PATIENT
  Age: 6 Month
  Sex: Male
  Weight: 8 kg

DRUGS (2)
  1. LEVETIRACETAM [Suspect]
     Active Substance: LEVETIRACETAM
     Indication: Seizure
     Dosage: 200 MILLIGRAM, 1 TOTAL (SOLUTION TO BE DILUTED FOR INFUSION)
     Route: 045
     Dates: start: 20241126, end: 20241126
  2. MIDAZOLAM HYDROCHLORIDE [Suspect]
     Active Substance: MIDAZOLAM HYDROCHLORIDE
     Indication: Seizure
     Dosage: 200 MICROGRAM, 1 TOTAL (INJECTABLE SOLUTION (IM-IV))
     Route: 045

REACTIONS (4)
  - Seizure [Recovered/Resolved]
  - Drug ineffective [Recovered/Resolved]
  - Wrong product administered [Recovered/Resolved]
  - Product packaging confusion [Recovered/Resolved]

NARRATIVE: CASE EVENT DATE: 20241126
